FAERS Safety Report 19605478 (Version 5)
Quarter: 2023Q4

REPORT INFORMATION
  Report Type: Report from Study
  Country: US (occurrence: US)
  Receive Date: 20210723
  Receipt Date: 20231031
  Transmission Date: 20240110
  Serious: Yes (Other)
  Sender: FDA-Public Use
  Company Number: US-SHIRE-US202014800

PATIENT
  Sex: Female

DRUGS (2)
  1. HUMAN IMMUNOGLOBULIN G\HYALURONIDASE RECOMBINANT HUMAN [Suspect]
     Active Substance: HUMAN IMMUNOGLOBULIN G\HYALURONIDASE (HUMAN RECOMBINANT)
     Indication: Selective IgA immunodeficiency
     Dosage: 45 GRAM, Q3WEEKS
     Route: 065
  2. HUMAN IMMUNOGLOBULIN G\HYALURONIDASE RECOMBINANT HUMAN [Suspect]
     Active Substance: HUMAN IMMUNOGLOBULIN G\HYALURONIDASE (HUMAN RECOMBINANT)
     Indication: Seasonal affective disorder

REACTIONS (11)
  - Pneumonia [Recovering/Resolving]
  - Allergy to synthetic fabric [Unknown]
  - Memory impairment [Unknown]
  - Liquid product physical issue [Unknown]
  - Illness [Unknown]
  - Somnolence [Unknown]
  - Cough [Unknown]
  - Dyspnoea [Unknown]
  - Migraine [Unknown]
  - Malaise [Unknown]
  - Bronchitis [Unknown]
